FAERS Safety Report 15136208 (Version 1)
Quarter: 2018Q3

REPORT INFORMATION
  Report Type: Spontaneous
  Country: US (occurrence: US)
  Receive Date: 20180712
  Receipt Date: 20180712
  Transmission Date: 20181010
  Serious: No
  Sender: FDA-Public Use
  Company Number: US-BAYER-2018-132499

PATIENT
  Age: 83 Year
  Sex: Female
  Weight: 69.98 kg

DRUGS (1)
  1. ALEVE [Suspect]
     Active Substance: NAPROXEN SODIUM
     Indication: PAIN
     Dosage: 2 DF, AT ONE DOSE
     Route: 048

REACTIONS (1)
  - Drug ineffective [Unknown]
